FAERS Safety Report 23599266 (Version 2)
Quarter: 2024Q1

REPORT INFORMATION
  Report Type: Report from Study
  Country: US (occurrence: US)
  Receive Date: 20240306
  Receipt Date: 20240321
  Transmission Date: 20240410
  Serious: Yes (Hospitalization)
  Sender: FDA-Public Use
  Company Number: US-ORPHANEU-2023000379

PATIENT

DRUGS (6)
  1. CARBAGLU [Suspect]
     Active Substance: CARGLUMIC ACID
     Indication: Propionic acidaemia
     Dosage: 300 MILLIGRAM, TID
     Dates: start: 20230114
  2. CARBAGLU [Suspect]
     Active Substance: CARGLUMIC ACID
     Dosage: 300 MILLIGRAM, TID
  3. VIGABATRIN [Concomitant]
     Active Substance: VIGABATRIN
     Indication: Product used for unknown indication
     Dosage: 500 MG POWDER PACK
  4. LEVETIRACETAM [Concomitant]
     Active Substance: LEVETIRACETAM
     Indication: Product used for unknown indication
     Dosage: 1000 MG TABLET
  5. LEVOCARNITINE [Concomitant]
     Active Substance: LEVOCARNITINE
     Indication: Product used for unknown indication
     Dosage: POWDER
  6. LACOSAMIDE [Concomitant]
     Active Substance: LACOSAMIDE
     Indication: Product used for unknown indication
     Dosage: 100 MG TABLET

REACTIONS (7)
  - Metabolic disorder [Recovering/Resolving]
  - Anal incontinence [Recovering/Resolving]
  - Pleural effusion [Recovering/Resolving]
  - Respiratory failure [Recovering/Resolving]
  - Vomiting [Recovering/Resolving]
  - Retching [Unknown]
  - Vomiting [Unknown]

NARRATIVE: CASE EVENT DATE: 20230101
